FAERS Safety Report 10879805 (Version 10)
Quarter: 2020Q4

REPORT INFORMATION
  Report Type: Spontaneous
  Country: US (occurrence: US)
  Receive Date: 20150302
  Receipt Date: 20201110
  Transmission Date: 20210113
  Serious: Yes (Other)
  Sender: FDA-Public Use
  Company Number: US-PFIZER INC-2015068212

PATIENT
  Age: 51 Year
  Sex: Female

DRUGS (2)
  1. CLINDAMYCIN. [Concomitant]
     Active Substance: CLINDAMYCIN
     Dosage: 300 MG, 2X/DAY (EVERY 12 HOURS)
     Route: 048
  2. LYRICA [Suspect]
     Active Substance: PREGABALIN
     Indication: FIBROMYALGIA
     Dosage: 150 MG, 3X/DAY (TAKE 1 CAPSULE(S) 3 TIMES A DAY)
     Route: 048

REACTIONS (11)
  - Syncope [Unknown]
  - Stress [Unknown]
  - Withdrawal syndrome [Unknown]
  - Panic attack [Unknown]
  - Depressed mood [Unknown]
  - Violence-related symptom [Unknown]
  - Epicondylitis [Unknown]
  - Diabetes mellitus [Unknown]
  - Hypertension [Unknown]
  - Self-injurious ideation [Unknown]
  - Arthralgia [Unknown]
